FAERS Safety Report 4457970-5 (Version None)
Quarter: 2004Q3

REPORT INFORMATION
  Report Type: 
  Country: None (occurrence: None)
  Receive Date: 20040922
  Receipt Date: 20040910
  Transmission Date: 20050211
  Serious: No
  Sender: FDA-Public Use
  Company Number: 2004SE04921

PATIENT
  Age: 73 Year
  Sex: Female

DRUGS (4)
  1. OMEPRAZOLE [Suspect]
     Indication: GASTRIC ULCER
     Dosage: 20 MG DAILY PO
     Route: 048
     Dates: start: 20040806, end: 20040813
  2. RINGEREAZE [Concomitant]
  3. TINELAC [Concomitant]
  4. ALVILACK [Concomitant]

REACTIONS (1)
  - RHABDOMYOLYSIS [None]
